FAERS Safety Report 10243610 (Version 1)
Quarter: 2014Q2

REPORT INFORMATION
  Report Type: Spontaneous
  Country: US (occurrence: US)
  Receive Date: 20140618
  Receipt Date: 20140618
  Transmission Date: 20141212
  Serious: No
  Sender: FDA-Public Use
  Company Number: US-PFIZER INC-2014166978

PATIENT
  Sex: Female

DRUGS (3)
  1. CELEBREX [Suspect]
     Indication: PAIN
     Dosage: 200 MG
     Dates: start: 20140613
  2. CELEBREX [Suspect]
     Indication: ARTHRITIS
  3. ADVIL [Concomitant]
     Indication: PAIN

REACTIONS (1)
  - Drug ineffective [Unknown]
